FAERS Safety Report 4331155-5 (Version None)
Quarter: 2004Q1

REPORT INFORMATION
  Report Type: 
  Country: None (occurrence: None)
  Receive Date: 20040331
  Receipt Date: 20040316
  Transmission Date: 20041129
  Serious: Yes (Hospitalization)
  Sender: FDA-Public Use
  Company Number: 2004AP01754

PATIENT
  Age: 88 Year
  Sex: Female

DRUGS (7)
  1. IRESSA [Suspect]
     Indication: LUNG ADENOCARCINOMA
     Dosage: 250 MG DAILY PO
     Route: 048
     Dates: start: 20031007, end: 20031120
  2. IRESSA [Suspect]
     Indication: NON-SMALL CELL LUNG CANCER
     Dosage: 250 MG DAILY PO
     Route: 048
     Dates: start: 20031007, end: 20031120
  3. OMEPRAZOLE [Concomitant]
  4. CEREKINON [Concomitant]
  5. MARZULENE S [Concomitant]
  6. PAXIL [Concomitant]
  7. MENESIT [Concomitant]

REACTIONS (4)
  - CRYPTOGENIC ORGANIZING PNEUMONIA [None]
  - DEPRESSED LEVEL OF CONSCIOUSNESS [None]
  - EOSINOPHILIC PNEUMONIA [None]
  - LUNG DISORDER [None]
